FAERS Safety Report 4972084-3 (Version None)
Quarter: 2006Q2

REPORT INFORMATION
  Report Type: 
  Country: None (occurrence: None)
  Receive Date: 20060407
  Receipt Date: 20060330
  Transmission Date: 20061013
  Serious: Yes (Life-Threatening, Other)
  Sender: FDA-Public Use
  Company Number: 2006036498

PATIENT
  Age: 33 Year
  Sex: Male
  Weight: 45.8133 kg

DRUGS (4)
  1. XANAX [Suspect]
     Indication: ANXIETY
     Dosage: 4 MG (1 MG, 4 IN 1 D) ORAL
     Route: 048
     Dates: start: 19930101
  2. ALPRAZOLAM [Suspect]
     Indication: ANXIETY
     Dosage: 4 MG (1 MG, 4 IN 1 D) ORAL
     Route: 048
  3. OMEGA 3-6-9 (OMEGA 6 TRIGLYCERIDES, OMEGA 9 TRIGLYCERIDES, OMEGA-3 TRI [Concomitant]
  4. SAW PALMETTO [Concomitant]

REACTIONS (17)
  - AGITATION [None]
  - ANXIETY [None]
  - CONDITION AGGRAVATED [None]
  - CONFUSIONAL STATE [None]
  - DRUG INEFFECTIVE [None]
  - INADEQUATE ANALGESIA [None]
  - INCORRECT ROUTE OF DRUG ADMINISTRATION [None]
  - INSOMNIA [None]
  - IRRITABILITY [None]
  - NERVOUS SYSTEM DISORDER [None]
  - ORAL INTAKE REDUCED [None]
  - PAIN [None]
  - PHARMACEUTICAL PRODUCT COMPLAINT [None]
  - PROSTATIC DISORDER [None]
  - TESTICULAR PAIN [None]
  - WEIGHT DECREASED [None]
  - WEIGHT GAIN POOR [None]
